FAERS Safety Report 5592544-4 (Version None)
Quarter: 2008Q1

REPORT INFORMATION
  Report Type: 
  Country: None (occurrence: None)
  Receive Date: 20080111
  Receipt Date: 20080102
  Transmission Date: 20080703
  Serious: Yes (Other)
  Sender: FDA-Public Use
  Company Number: 08H-161-0313653-00

PATIENT
  Age: 7 Year
  Sex: Male

DRUGS (4)
  1. VANCOMYCIN [Suspect]
     Indication: STREPTOCOCCAL INFECTION
  2. CEFTRIAXONE [Concomitant]
  3. IMIPENEM (IMIPENEM) [Concomitant]
  4. AMIKACIN [Concomitant]

REACTIONS (10)
  - AORTIC VALVE INCOMPETENCE [None]
  - GRAND MAL CONVULSION [None]
  - HISTIOCYTOSIS HAEMATOPHAGIC [None]
  - INFUSION RELATED REACTION [None]
  - INTESTINAL HAEMORRHAGE [None]
  - MITRAL VALVE INCOMPETENCE [None]
  - OXYGEN SATURATION DECREASED [None]
  - RED MAN SYNDROME [None]
  - RENAL FAILURE [None]
  - RESPIRATORY DISORDER [None]
